FAERS Safety Report 25079790 (Version 2)
Quarter: 2025Q2

REPORT INFORMATION
  Report Type: Spontaneous
  Country: AT (occurrence: AT)
  Receive Date: 20250314
  Receipt Date: 20250429
  Transmission Date: 20250717
  Serious: Yes (Death, Hospitalization, Other)
  Sender: BAYER HEALTHCARE PHARMACEUTICALS INC.
  Company Number: AT-BAYER-2025A033457

PATIENT
  Age: 75 Year
  Sex: Male

DRUGS (4)
  1. NUBEQA [Suspect]
     Active Substance: DAROLUTAMIDE
     Indication: Hormone-dependent prostate cancer
     Dosage: 600 MG, BID
     Route: 048
     Dates: start: 202403
  2. GONADORELIN [Suspect]
     Active Substance: GONADORELIN
     Indication: Hormone-dependent prostate cancer
     Dates: start: 202403, end: 202406
  3. DOCETAXEL [Suspect]
     Active Substance: DOCETAXEL
     Indication: Hormone-dependent prostate cancer
     Dates: start: 202403, end: 202406
  4. TAXOTERE [Concomitant]
     Active Substance: DOCETAXEL
     Indication: Prostate cancer metastatic

REACTIONS (10)
  - Metastases to lymph nodes [Fatal]
  - Mouth haemorrhage [None]
  - Mandibular mass [None]
  - Pharyngeal haemorrhage [Unknown]
  - Atrial fibrillation [None]
  - Ear haemorrhage [Unknown]
  - Epistaxis [Unknown]
  - General physical health deterioration [Unknown]
  - Tachycardia [None]
  - Hypotension [None]

NARRATIVE: CASE EVENT DATE: 20250101
